FAERS Safety Report 6393955-X (Version None)
Quarter: 2009Q4

REPORT INFORMATION
  Report Type: 
  Country: None (occurrence: None)
  Receive Date: 20091008
  Receipt Date: 20090930
  Transmission Date: 20100525
  Serious: Yes (Hospitalization)
  Sender: FDA-Public Use
  Company Number: BE-WYE-H11439109

PATIENT
  Sex: Female

DRUGS (2)
  1. PANTOMED [Suspect]
     Indication: DYSPEPSIA
     Route: 048
  2. WELLBUTRIN [Interacting]
     Dosage: UNKNOWN

REACTIONS (4)
  - DRUG INEFFECTIVE [None]
  - DRUG INTERACTION [None]
  - NAUSEA [None]
  - VOMITING [None]
